FAERS Safety Report 6538611-X (Version None)
Quarter: 2010Q1

REPORT INFORMATION
  Report Type: 
  Country: None (occurrence: None)
  Receive Date: 20100113
  Receipt Date: 20100113
  Transmission Date: 20100710
  Serious: Yes (Life-Threatening, Hospitalization)
  Sender: FDA-Public Use
  Company Number: None

PATIENT
  Age: 76 Year
  Sex: Female
  Weight: 77.1 kg

DRUGS (2)
  1. ZOLOFT [Suspect]
     Dosage: DAILY PO
     Route: 048
  2. RISPERDAL [Suspect]
     Dosage: TWICE DAILY OTHER
     Route: 050

REACTIONS (3)
  - CONVULSION [None]
  - HYPONATRAEMIA [None]
  - LOSS OF CONSCIOUSNESS [None]
